FAERS Safety Report 4453801-8 (Version None)
Quarter: 2004Q3

REPORT INFORMATION
  Report Type: 
  Country: None (occurrence: None)
  Receive Date: 20040826
  Receipt Date: 20040505
  Transmission Date: 20050211
  Serious: No
  Sender: FDA-Public Use
  Company Number: WAES 0405USA00272

PATIENT
  Age: 63 Year
  Sex: Male
  Weight: 116.5744 kg

DRUGS (5)
  1. ZETIA [Suspect]
     Indication: HYPERCHOLESTEROLAEMIA
     Dosage: 10 MG/DAILY/PO
     Route: 048
     Dates: start: 20040311, end: 20040401
  2. SOTAL [Concomitant]
  3. VIOXX [Concomitant]
  4. ZOCOR [Concomitant]
  5. ASPIRIN [Concomitant]

REACTIONS (6)
  - ANGIONEUROTIC OEDEMA [None]
  - ARTHRALGIA [None]
  - FATIGUE [None]
  - MYALGIA [None]
  - PRURITUS [None]
  - RASH [None]
